FAERS Safety Report 18096488 (Version 27)
Quarter: 2024Q1

REPORT INFORMATION
  Report Type: Report from Study
  Country: US (occurrence: US)
  Receive Date: 20200731
  Receipt Date: 20240215
  Transmission Date: 20240410
  Serious: Yes (Other)
  Sender: FDA-Public Use
  Company Number: US-SHIRE-US202024645

PATIENT
  Age: 55 Year
  Sex: Female
  Weight: 123 kg

DRUGS (62)
  1. HUMAN IMMUNOGLOBULIN G [Suspect]
     Active Substance: HUMAN IMMUNOGLOBULIN G
     Indication: Immunodeficiency common variable
     Dosage: 20 GRAM, 1/WEEK
     Route: 058
     Dates: start: 20170412
  2. HUMAN IMMUNOGLOBULIN G [Suspect]
     Active Substance: HUMAN IMMUNOGLOBULIN G
     Indication: Primary immunodeficiency syndrome
     Dosage: 20 GRAM, 1/WEEK
     Route: 058
     Dates: start: 20170706
  3. HUMAN IMMUNOGLOBULIN G [Suspect]
     Active Substance: HUMAN IMMUNOGLOBULIN G
     Dosage: 20 GRAM, 1/WEEK
     Route: 058
     Dates: start: 20170715
  4. HYQVIA [Suspect]
     Active Substance: HUMAN IMMUNOGLOBULIN G\HYALURONIDASE (HUMAN RECOMBINANT)
     Indication: Immunodeficiency common variable
     Dosage: 50 GRAM, 1/WEEK
     Route: 058
     Dates: start: 20160407
  5. AMOXICILLIN [Suspect]
     Active Substance: AMOXICILLIN
     Indication: Product used for unknown indication
     Dosage: UNK
     Route: 065
  6. TINACTIN [Suspect]
     Active Substance: TOLNAFTATE
     Indication: Product used for unknown indication
     Dosage: UNK
     Route: 065
  7. CYCLOBENZAPRINE HYDROCHLORIDE [Concomitant]
     Active Substance: CYCLOBENZAPRINE HYDROCHLORIDE
     Dosage: UNK
     Route: 065
  8. ACETAMINOPHEN [Concomitant]
     Active Substance: ACETAMINOPHEN
     Dosage: UNK
     Route: 065
  9. DIPHENHYDRAMINE [Concomitant]
     Active Substance: DIPHENHYDRAMINE
     Dosage: UNK
     Route: 065
  10. ROSUVASTATIN CALCIUM [Concomitant]
     Active Substance: ROSUVASTATIN CALCIUM
     Dosage: UNK
     Route: 065
  11. CEFUROXIME [Concomitant]
     Active Substance: CEFUROXIME
     Dosage: UNK
     Route: 065
  12. VESICARE [Concomitant]
     Active Substance: SOLIFENACIN SUCCINATE
     Dosage: UNK
     Route: 065
  13. DICLOFENAC SODIUM [Concomitant]
     Active Substance: DICLOFENAC\DICLOFENAC SODIUM
     Dosage: UNK
     Route: 065
  14. ONDANSETRON HYDROCHLORIDE [Concomitant]
     Active Substance: ONDANSETRON HYDROCHLORIDE
     Dosage: UNK
     Route: 065
  15. PROMETHAZINE HYDROCHLORIDE [Concomitant]
     Active Substance: PROMETHAZINE HYDROCHLORIDE
     Dosage: UNK
     Route: 065
  16. IMODIUM A-D [Concomitant]
     Active Substance: LOPERAMIDE HYDROCHLORIDE
     Dosage: UNK
     Route: 065
  17. CHLORDIAZEPOXIDE;CLIDINIUM [Concomitant]
     Dosage: UNK
     Route: 065
  18. DOXYCYCLINE [Concomitant]
     Active Substance: DOXYCYCLINE
     Dosage: UNK
     Route: 065
  19. AMBIEN CR [Concomitant]
     Active Substance: ZOLPIDEM TARTRATE
     Dosage: UNK
     Route: 065
  20. FLUCONAZOLE [Concomitant]
     Active Substance: FLUCONAZOLE
     Dosage: 100 MILLIGRAM, QD
     Route: 065
  21. CREON [Concomitant]
     Active Substance: PANCRELIPASE AMYLASE\PANCRELIPASE LIPASE\PANCRELIPASE PROTEASE
     Dosage: UNK
     Route: 065
  22. ROPINIROLE HYDROCHLORIDE [Concomitant]
     Active Substance: ROPINIROLE HYDROCHLORIDE
     Dosage: UNK
     Route: 065
  23. LYRICA [Concomitant]
     Active Substance: PREGABALIN
     Dosage: UNK
     Route: 065
  24. SPIRIVA RESPIMAT [Concomitant]
     Active Substance: TIOTROPIUM BROMIDE
     Dosage: UNK
     Route: 065
  25. DOXYCYCLINE HYCLATE [Concomitant]
     Active Substance: DOXYCYCLINE HYCLATE
     Dosage: UNK
     Route: 065
  26. INCRUSE ELLIPTA [Concomitant]
     Active Substance: UMECLIDINIUM BROMIDE
     Dosage: UNK
     Route: 065
  27. XYZAL [Concomitant]
     Active Substance: LEVOCETIRIZINE DIHYDROCHLORIDE
     Dosage: UNK
     Route: 065
  28. DEXAMETHASONE [Concomitant]
     Active Substance: DEXAMETHASONE
     Dosage: UNK
     Route: 065
  29. HUMALOG [Concomitant]
     Active Substance: INSULIN LISPRO
     Dosage: UNK
     Route: 065
  30. DYMISTA [Concomitant]
     Active Substance: AZELASTINE HYDROCHLORIDE\FLUTICASONE PROPIONATE
     Dosage: UNK
     Route: 065
  31. PROVENTIL HFA [Concomitant]
     Active Substance: ALBUTEROL SULFATE
     Dosage: UNK
     Route: 065
  32. ADVAIR HFA [Concomitant]
     Active Substance: FLUTICASONE PROPIONATE\SALMETEROL XINAFOATE
     Dosage: UNK
     Route: 065
  33. NEXIUM [Concomitant]
     Active Substance: ESOMEPRAZOLE MAGNESIUM
     Dosage: UNK
     Route: 065
  34. LIVALO [Concomitant]
     Active Substance: PITAVASTATIN CALCIUM
     Dosage: UNK
     Route: 065
  35. SINGULAIR [Concomitant]
     Active Substance: MONTELUKAST SODIUM
     Dosage: UNK
     Route: 065
  36. CLEOCIN [Concomitant]
     Active Substance: CLINDAMYCIN PHOSPHATE
     Dosage: UNK
     Route: 065
  37. MONTELUKAST SODIUM [Concomitant]
     Active Substance: MONTELUKAST SODIUM
     Dosage: UNK
     Route: 065
  38. ALBUTEROL\IPRATROPIUM [Concomitant]
     Active Substance: ALBUTEROL\IPRATROPIUM
     Dosage: UNK
     Route: 065
  39. LEVOCETIRIZINE DIHYDROCHLORIDE [Concomitant]
     Active Substance: LEVOCETIRIZINE DIHYDROCHLORIDE
     Dosage: UNK
     Route: 065
  40. Contour [Concomitant]
     Dosage: UNK
     Route: 065
  41. CYANOCOBALAMIN [Concomitant]
     Active Substance: CYANOCOBALAMIN
     Dosage: UNK
     Route: 065
  42. RANITIDINE HYDROCHLORIDE [Concomitant]
     Active Substance: RANITIDINE HYDROCHLORIDE
     Dosage: UNK
     Route: 065
  43. SUDAFED [Concomitant]
     Active Substance: PSEUDOEPHEDRINE HYDROCHLORIDE
     Dosage: UNK
     Route: 065
  44. BENADRYL [Concomitant]
     Active Substance: DIPHENHYDRAMINE HYDROCHLORIDE
     Dosage: UNK
     Route: 065
  45. OXYCODONE HYDROCHLORIDE [Concomitant]
     Active Substance: OXYCODONE HYDROCHLORIDE
     Dosage: UNK
     Route: 065
  46. ROSUVASTATIN [Concomitant]
     Active Substance: ROSUVASTATIN
     Dosage: UNK
     Route: 065
  47. DICLOFENAC [Concomitant]
     Active Substance: DICLOFENAC
     Dosage: UNK
     Route: 065
  48. ONDANSETRON [Concomitant]
     Active Substance: ONDANSETRON
     Dosage: UNK
     Route: 065
  49. PROMETHAZINE [Concomitant]
     Active Substance: PROMETHAZINE HYDROCHLORIDE
     Dosage: UNK
     Route: 065
  50. ROPINIROLE [Concomitant]
     Active Substance: ROPINIROLE
     Dosage: UNK
     Route: 065
  51. SPIRIVA [Concomitant]
     Active Substance: TIOTROPIUM BROMIDE MONOHYDRATE
     Dosage: UNK
     Route: 065
  52. INCRUSE ELLIPTA [Concomitant]
     Active Substance: UMECLIDINIUM BROMIDE
     Dosage: UNK
     Route: 065
  53. MONTELUKAST [Concomitant]
     Active Substance: MONTELUKAST SODIUM
     Dosage: UNK
     Route: 065
  54. LEVOCETIRIZINE [Concomitant]
     Active Substance: LEVOCETIRIZINE
     Dosage: UNK
     Route: 065
  55. EPINEPHRINE [Concomitant]
     Active Substance: EPINEPHRINE
     Dosage: UNK
     Route: 065
  56. RANITIDINE [Concomitant]
     Active Substance: RANITIDINE
     Dosage: UNK
     Route: 065
  57. PREDNISONE [Concomitant]
     Active Substance: PREDNISONE
     Dosage: UNK
     Route: 065
  58. PROAIR HFA [Concomitant]
     Active Substance: ALBUTEROL SULFATE
     Dosage: UNK
     Route: 065
  59. OXYCODONE [Concomitant]
     Active Substance: OXYCODONE\OXYCODONE HYDROCHLORIDE
     Dosage: UNK
     Route: 065
  60. ERYTHROMYCIN [Concomitant]
     Active Substance: ERYTHROMYCIN
     Dosage: UNK
     Route: 065
  61. METROGEL [Concomitant]
     Active Substance: METRONIDAZOLE
     Dosage: UNK
     Route: 065
  62. MODERNA COVID-19 VACCINE [Concomitant]
     Active Substance: ELASOMERAN
     Dosage: UNK
     Route: 065

REACTIONS (34)
  - Kidney infection [Unknown]
  - Leukaemia [Unknown]
  - Nasopharyngitis [Unknown]
  - Sinusitis [Unknown]
  - Weight increased [Unknown]
  - Skin disorder [Unknown]
  - Injection site bruising [Unknown]
  - Drug hypersensitivity [Unknown]
  - Herpes simplex test positive [Unknown]
  - Nerve compression [Unknown]
  - Urinary tract infection [Not Recovered/Not Resolved]
  - Respiratory disorder [Unknown]
  - Ear infection [Unknown]
  - Folliculitis [Unknown]
  - Skin laceration [Unknown]
  - Bacterial vaginosis [Unknown]
  - Vaginal infection [Unknown]
  - Infection [Unknown]
  - Needle issue [Unknown]
  - Viral rash [Unknown]
  - Rash macular [Recovered/Resolved]
  - Infusion site discharge [Unknown]
  - Blood blister [Unknown]
  - Lymphadenopathy [Unknown]
  - Oropharyngeal pain [Unknown]
  - Rash erythematous [Unknown]
  - Injection site erythema [Recovered/Resolved]
  - Cough [Unknown]
  - Pain [Unknown]
  - Migraine [Unknown]
  - Diarrhoea [Unknown]
  - Headache [Unknown]
  - Pruritus [Unknown]
  - Nausea [Unknown]

NARRATIVE: CASE EVENT DATE: 20210301
